FAERS Safety Report 8524876-1 (Version None)
Quarter: 2012Q3

REPORT INFORMATION
  Report Type: 
  Country: None (occurrence: None)
  Receive Date: 20120720
  Receipt Date: 20120716
  Transmission Date: 20120928
  Serious: Yes (Hospitalization)
  Sender: FDA-Public Use
  Company Number: US-ROXANE LABORATORIES, INC.-2012-RO-01561RO

PATIENT
  Sex: Male

DRUGS (3)
  1. SINGULAIR [Concomitant]
     Indication: RESPIRATORY SYNCYTIAL VIRUS INFECTION
  2. PROPRANOLOL [Suspect]
     Indication: TACHYCARDIA
     Route: 048
     Dates: start: 20120213, end: 20120716
  3. XOPENEX [Concomitant]
     Indication: RESPIRATORY SYNCYTIAL VIRUS INFECTION

REACTIONS (4)
  - TOXICITY TO VARIOUS AGENTS [None]
  - PRODUCT QUALITY ISSUE [None]
  - HYPOTENSION [None]
  - HYPOGLYCAEMIA [None]
